FAERS Safety Report 10692360 (Version 1)
Quarter: 2015Q1

REPORT INFORMATION
  Report Type: Spontaneous
  Country: CA (occurrence: None)
  Receive Date: 20150102
  Receipt Date: 20150102
  Transmission Date: 20150720
  Serious: Yes (Hospitalization, Other)
  Sender: FDA-Public Use
  Company Number: CA-2014VAL000245

PATIENT

DRUGS (4)
  1. ENOXAPARIN (ENOXAPARIN) [Suspect]
     Active Substance: ENOXAPARIN
     Indication: MATERNAL EXPOSURE DURING PREGNANCY
     Route: 064
  2. CERVIDIL [Suspect]
     Active Substance: DINOPROSTONE
     Indication: MATERNAL EXPOSURE DURING PREGNANCY
     Route: 064
  3. METOPROLOL TARTRATE. [Suspect]
     Active Substance: METOPROLOL TARTRATE
     Indication: MATERNAL EXPOSURE DURING PREGNANCY
     Route: 064
  4. DIGOXIN (DIGOXIN) [Suspect]
     Active Substance: DIGOXIN
     Indication: MATERNAL EXPOSURE DURING PREGNANCY
     Route: 064

REACTIONS (3)
  - Foetal exposure during pregnancy [None]
  - Caesarean section [None]
  - Foetal heart rate disorder [None]
